FAERS Safety Report 9092301 (Version 1)
Quarter: 2013Q1

REPORT INFORMATION
  Report Type: Report from Study
  Country: US (occurrence: US)
  Receive Date: 20130131
  Receipt Date: 20130131
  Transmission Date: 20140127
  Serious: No
  Sender: FDA-Public Use
  Company Number: US-ABBOTT-12P-163-0992858-00

PATIENT
  Age: 43 Year
  Sex: Female

DRUGS (6)
  1. HUMIRA [Suspect]
     Indication: ANKYLOSING SPONDYLITIS
     Dates: start: 20120828
  2. AZULFIDINE [Concomitant]
     Indication: ANKYLOSING SPONDYLITIS
     Route: 048
  3. ATENOLOL [Concomitant]
     Indication: ARRHYTHMIA
     Dosage: DAILY
     Route: 048
  4. CARDIZEM [Concomitant]
     Indication: ARRHYTHMIA
  5. DETROL LA [Concomitant]
     Indication: HYPERTONIC BLADDER
     Dosage: DAILY
  6. UNKNOWN ANTI-INFLAMMATORY [Concomitant]
     Indication: PRODUCT USED FOR UNKNOWN INDICATION

REACTIONS (2)
  - Body temperature increased [Not Recovered/Not Resolved]
  - Cough [Unknown]
